FAERS Safety Report 9340469 (Version 1)
Quarter: 2013Q2

REPORT INFORMATION
  Report Type: Spontaneous
  Country: GB (occurrence: GB)
  Receive Date: 20130610
  Receipt Date: 20130610
  Transmission Date: 20140414
  Serious: Yes (Other)
  Sender: FDA-Public Use
  Company Number: GB-PFIZER INC-2013168087

PATIENT
  Sex: Female

DRUGS (1)
  1. XALATAN [Suspect]
     Dosage: UNK
     Route: 047
     Dates: start: 20130525

REACTIONS (5)
  - Eye haemorrhage [Unknown]
  - Eye swelling [Unknown]
  - Eyelid oedema [Unknown]
  - Eye irritation [Unknown]
  - Skin wrinkling [Unknown]
